FAERS Safety Report 12089640 (Version 4)
Quarter: 2016Q2

REPORT INFORMATION
  Report Type: Spontaneous
  Country: US (occurrence: US)
  Receive Date: 20160218
  Receipt Date: 20160405
  Transmission Date: 20160815
  Serious: Yes (Life-Threatening)
  Sender: FDA-Public Use
  Company Number: PHEH2016US003933

PATIENT
  Age: 57 Year
  Sex: Female
  Weight: 67.13 kg

DRUGS (4)
  1. REBIF [Concomitant]
     Active Substance: INTERFERON BETA-1A
     Indication: MULTIPLE SCLEROSIS
     Route: 065
  2. GILENYA [Suspect]
     Active Substance: FINGOLIMOD HYDROCHLORIDE
     Indication: RELAPSING-REMITTING MULTIPLE SCLEROSIS
     Dosage: UNK
     Route: 048
     Dates: start: 201301
  3. AVONEX [Concomitant]
     Active Substance: INTERFERON BETA-1A
     Indication: MULTIPLE SCLEROSIS
     Route: 065
  4. COPAXONE [Concomitant]
     Active Substance: GLATIRAMER ACETATE
     Indication: MULTIPLE SCLEROSIS
     Route: 065

REACTIONS (8)
  - Invasive ductal breast carcinoma [Not Recovered/Not Resolved]
  - Paraesthesia [Unknown]
  - Contusion [Unknown]
  - Fatigue [Unknown]
  - Blood pressure increased [Unknown]
  - Breast mass [Unknown]
  - Hypoaesthesia [Unknown]
  - Asthenia [Unknown]

NARRATIVE: CASE EVENT DATE: 20160205
